FAERS Safety Report 13740617 (Version 1)
Quarter: 2017Q3

REPORT INFORMATION
  Report Type: Report from Study
  Country: None (occurrence: US)
  Receive Date: 20170711
  Receipt Date: 20170711
  Transmission Date: 20171127
  Serious: Yes (Disabling)
  Sender: FDA-Public Use
  Company Number: US-ABBVIE-17K-163-2031984-00

PATIENT
  Sex: Male

DRUGS (1)
  1. HUMIRA [Suspect]
     Active Substance: ADALIMUMAB
     Indication: RHEUMATOID ARTHRITIS
     Route: 058
     Dates: start: 20170609

REACTIONS (6)
  - Fatigue [Unknown]
  - Head discomfort [Unknown]
  - Neck pain [Unknown]
  - Musculoskeletal pain [Unknown]
  - Glomerulonephritis membranous [Unknown]
  - Depression [Unknown]
